FAERS Safety Report 8427058-7 (Version None)
Quarter: 2012Q2

REPORT INFORMATION
  Report Type: 
  Country: None (occurrence: None)
  Receive Date: 20120611
  Receipt Date: 20120607
  Transmission Date: 20120825
  Serious: Yes (Other)
  Sender: FDA-Public Use
  Company Number: CN-ROCHE-1076347

PATIENT
  Age: 86 Year
  Sex: Male

DRUGS (2)
  1. XELODA [Suspect]
     Indication: GASTROINTESTINAL CARCINOMA
     Dosage: 1500MG TWICE A DAY FOR TWO WEEKS FOLLOWED BY ONE WEEK BREAK
     Dates: start: 20120505
  2. VITAMIN B6 [Concomitant]
     Indication: PRODUCT USED FOR UNKNOWN INDICATION

REACTIONS (2)
  - DEFAECATION URGENCY [None]
  - MICTURITION URGENCY [None]
